FAERS Safety Report 17650081 (Version 1)
Quarter: 2020Q2

REPORT INFORMATION
  Report Type: Spontaneous
  Country: US (occurrence: US)
  Receive Date: 20200408
  Receipt Date: 20200408
  Transmission Date: 20200713
  Serious: No
  Sender: FDA-Public Use
  Company Number: None

PATIENT
  Age: 51 Year
  Sex: Female

DRUGS (2)
  1. VALACYCLOVIR [Suspect]
     Active Substance: VALACYCLOVIR HYDROCHLORIDE
     Indication: HERPES ZOSTER
     Dosage: ?          QUANTITY:21 TABLET(S);?
     Route: 048
     Dates: start: 20200406
  2. PAROXETINE. [Suspect]
     Active Substance: PAROXETINE

REACTIONS (5)
  - Product formulation issue [None]
  - Constipation [None]
  - Diarrhoea [None]
  - Product label issue [None]
  - Abdominal pain [None]

NARRATIVE: CASE EVENT DATE: 20200408
